FAERS Safety Report 7480645-5 (Version None)
Quarter: 2011Q2

REPORT INFORMATION
  Report Type: 
  Country: None (occurrence: None)
  Receive Date: 20110512
  Receipt Date: 20110512
  Transmission Date: 20111010
  Serious: Yes (Life-Threatening, Other)
  Sender: FDA-Public Use
  Company Number: None

PATIENT
  Age: 7 Year
  Sex: Female
  Weight: 19.9583 kg

DRUGS (1)
  1. SINGULAIR [Suspect]
     Indication: HYPERSENSITIVITY
     Dosage: 5 MG CHEWABLE TABLET ONE TABLET DAILY PO
     Route: 048
     Dates: start: 20101115, end: 20101122

REACTIONS (7)
  - SUICIDAL IDEATION [None]
  - AGGRESSION [None]
  - SELF INJURIOUS BEHAVIOUR [None]
  - INITIAL INSOMNIA [None]
  - SCREAMING [None]
  - ABNORMAL BEHAVIOUR [None]
  - CRYING [None]
